FAERS Safety Report 9184713 (Version 2)
Quarter: 2013Q2

REPORT INFORMATION
  Report Type: Report from Study
  Country: FR (occurrence: FR)
  Receive Date: 20130324
  Receipt Date: 20130620
  Transmission Date: 20140414
  Serious: Yes (Hospitalization, Other)
  Sender: FDA-Public Use
  Company Number: FR-ROCHE-1200616

PATIENT
  Age: 83 Year
  Sex: Male
  Weight: 83 kg

DRUGS (14)
  1. RITUXIMAB [Suspect]
     Indication: CHRONIC LYMPHOCYTIC LEUKAEMIA
     Route: 065
     Dates: start: 20100926
  2. RITUXIMAB [Suspect]
     Route: 065
     Dates: start: 20101221
  3. FLUDARABINE [Suspect]
     Indication: CHRONIC LYMPHOCYTIC LEUKAEMIA
     Route: 065
     Dates: start: 20101221
  4. CYCLOPHOSPHAMIDE [Suspect]
     Indication: CHRONIC LYMPHOCYTIC LEUKAEMIA
     Route: 065
     Dates: start: 20101221
  5. DAFALGAN [Concomitant]
     Dosage: AS NEEDED
     Route: 065
  6. GCSF OR GMCSF [Concomitant]
  7. EPO [Concomitant]
  8. ZELITREX [Concomitant]
     Dosage: 1 TABLET
     Route: 065
  9. BACTRIM FORTE [Concomitant]
     Route: 065
  10. CRESTOR [Concomitant]
     Dosage: DAILY 1 TAB
     Route: 065
  11. INEXIUM [Concomitant]
     Dosage: 1 TAB DAILY
     Route: 065
  12. PERMIXON [Concomitant]
     Dosage: 2 CAPSULES DAILY
     Route: 065
  13. PLAVIX [Concomitant]
     Dosage: 1 TAB IN THE EVENING
     Route: 065
  14. CORGARD (UNITED STATES) [Concomitant]
     Dosage: 1 DF DAILY
     Route: 065

REACTIONS (1)
  - Myelodysplastic syndrome [Not Recovered/Not Resolved]
